FAERS Safety Report 10048783 (Version 1)
Quarter: 2014Q1

REPORT INFORMATION
  Report Type: Spontaneous
  Country: IT (occurrence: IT)
  Receive Date: 20140331
  Receipt Date: 20140331
  Transmission Date: 20141002
  Serious: Yes (Hospitalization, Other)
  Sender: FDA-Public Use
  Company Number: IT-ACTAVIS-2014-06078

PATIENT
  Age: 3 Year
  Sex: Female
  Weight: 25 kg

DRUGS (2)
  1. PARACETAMOL  (UNKNOWN) [Suspect]
     Indication: INFLUENZA
     Dosage: 1.5 G, TOTAL
     Route: 065
  2. AMANTADINE HCL (AMALLC) [Suspect]
     Indication: INFLUENZA
     Dosage: 600 MG, TOTAL
     Route: 048
     Dates: start: 20140125, end: 20140126

REACTIONS (5)
  - Hallucination [Recovered/Resolved]
  - Psychomotor hyperactivity [Recovered/Resolved]
  - Vertigo [Recovered/Resolved]
  - Drug abuse [Recovered/Resolved]
  - Expired drug administered [Recovered/Resolved]
